FAERS Safety Report 25681757 (Version 2)
Quarter: 2025Q3

REPORT INFORMATION
  Report Type: Report from Study
  Country: CA (occurrence: CA)
  Receive Date: 20250814
  Receipt Date: 20250814
  Transmission Date: 20251020
  Serious: Yes (Other)
  Sender: PFIZER
  Company Number: CA-PFIZER INC-202500162750

PATIENT
  Age: 78 Year
  Sex: Female

DRUGS (2)
  1. ADALIMUMAB [Suspect]
     Active Substance: ADALIMUMAB
     Indication: Crohn^s disease
  2. ADALIMUMAB [Suspect]
     Active Substance: ADALIMUMAB
     Indication: Crohn^s disease

REACTIONS (5)
  - Cardiac flutter [Recovered/Resolved]
  - Extrasystoles [Recovered/Resolved]
  - Hypertension [Recovered/Resolved]
  - Oral disorder [Recovered/Resolved]
  - Palpitations [Recovered/Resolved]
